FAERS Safety Report 5986024-1 (Version None)
Quarter: 2008Q4

REPORT INFORMATION
  Report Type: 
  Country: None (occurrence: None)
  Receive Date: 20081205
  Receipt Date: 20081205
  Transmission Date: 20090506
  Serious: Yes (Other)
  Sender: FDA-Public Use
  Company Number: None

PATIENT
  Age: 73 Year
  Sex: Male

DRUGS (4)
  1. TIMOLOL MALEATE [Suspect]
     Indication: INTRAOCULAR PRESSURE INCREASED
     Route: 047
  2. PILOCARPINE [Suspect]
     Indication: INTRAOCULAR PRESSURE INCREASED
     Route: 047
  3. ACETAZOLAMIDE [Concomitant]
  4. IOPIDINE [Concomitant]

REACTIONS (3)
  - ANGLE CLOSURE GLAUCOMA [None]
  - CORNEAL OEDEMA [None]
  - VISUAL ACUITY REDUCED [None]
